FAERS Safety Report 5840465-1 (Version None)
Quarter: 2008Q3

REPORT INFORMATION
  Report Type: 
  Country: None (occurrence: None)
  Receive Date: 20080807
  Receipt Date: 20080807
  Transmission Date: 20090109
  Serious: Yes (Hospitalization)
  Sender: FDA-Public Use
  Company Number: None

PATIENT
  Age: 32 Year
  Sex: Female
  Weight: 98.4306 kg

DRUGS (1)
  1. MIRENA [Suspect]
     Indication: CONTRACEPTION
     Dosage: 1 DEVICE 5 YEARS INTRA-UTERI
     Route: 067
     Dates: start: 20070304, end: 20080702

REACTIONS (10)
  - AGGRESSION [None]
  - BLOOD PRESSURE DECREASED [None]
  - HAEMATOCRIT DECREASED [None]
  - HAEMOGLOBIN DECREASED [None]
  - HEART RATE INCREASED [None]
  - HORMONE LEVEL ABNORMAL [None]
  - LOSS OF CONSCIOUSNESS [None]
  - MENORRHAGIA [None]
  - PALPITATIONS [None]
  - TREMOR [None]
